FAERS Safety Report 21800027 (Version 3)
Quarter: 2023Q1

REPORT INFORMATION
  Report Type: Spontaneous
  Country: US (occurrence: US)
  Receive Date: 20221230
  Receipt Date: 20230105
  Transmission Date: 20230418
  Serious: Yes (Hospitalization, Other)
  Sender: FDA-Public Use
  Company Number: US-PFIZER INC-202201399960

PATIENT
  Age: 63 Year
  Sex: Female
  Weight: 49.9 kg

DRUGS (9)
  1. BRAFTOVI [Suspect]
     Active Substance: ENCORAFENIB
     Indication: Metastatic malignant melanoma
     Dosage: 75 MG (6 CAPSULES OF BRAFTOVI 75MG EACH EVERYDAY)
     Dates: start: 202210, end: 202212
  2. BRAFTOVI [Suspect]
     Active Substance: ENCORAFENIB
     Dosage: 225 MG, DAILY (TAKE 3 CAPSULES DAILY)
     Dates: start: 20221004
  3. BRAFTOVI [Suspect]
     Active Substance: ENCORAFENIB
     Dosage: 450 MG (6 CAPSULES OF THE BRAFTOVI)
     Dates: start: 202210
  4. BRAFTOVI [Suspect]
     Active Substance: ENCORAFENIB
     Dosage: UNK (REDUCED ME DOWN TO 33% OF THE DOSAGE)
  5. BRAFTOVI [Suspect]
     Active Substance: ENCORAFENIB
     Dosage: UNK (UPPED IT TO 50%)
     Dates: start: 20230101
  6. MEKTOVI [Suspect]
     Active Substance: BINIMETINIB
     Indication: Metastatic malignant melanoma
     Dosage: 15 MG (6 CAPLETS OF MEKTOVI 15MG EACH EVERYDAY)
     Dates: start: 202210, end: 202212
  7. MEKTOVI [Suspect]
     Active Substance: BINIMETINIB
     Dosage: 90 MG (6 OF MEKTOVI)
     Dates: start: 202210
  8. MEKTOVI [Suspect]
     Active Substance: BINIMETINIB
     Dosage: UNK (REDUCED ME DOWN TO 33% OF THE DOSAGE)
  9. MEKTOVI [Suspect]
     Active Substance: BINIMETINIB
     Dosage: UNK (UPPED IT TO 50%)
     Dates: start: 20230101

REACTIONS (10)
  - Vomiting [Recovered/Resolved]
  - Diarrhoea [Recovered/Resolved]
  - Headache [Recovered/Resolved]
  - Asthenia [Unknown]
  - Dyspnoea [Recovered/Resolved]
  - Arthralgia [Recovered/Resolved]
  - Myalgia [Recovered/Resolved]
  - Fatigue [Recovered/Resolved]
  - Drug intolerance [Unknown]
  - Off label use [Unknown]

NARRATIVE: CASE EVENT DATE: 20221001
